FAERS Safety Report 5147134-4 (Version None)
Quarter: 2006Q4

REPORT INFORMATION
  Report Type: 
  Country: None (occurrence: None)
  Receive Date: 20061103
  Receipt Date: 20061025
  Transmission Date: 20070319
  Serious: Yes (Disabling)
  Sender: FDA-Public Use
  Company Number: FTD20060003

PATIENT
  Age: 57 Year
  Sex: Male

DRUGS (1)
  1. FAMOTIDINE [Suspect]
     Indication: GASTRIC ULCER
     Dosage: 20 MG 2 DOSES PO
     Route: 048
     Dates: start: 20050101, end: 20050101

REACTIONS (2)
  - BLINDNESS [None]
  - RETINOPATHY [None]
